FAERS Safety Report 9107391 (Version 4)
Quarter: 2013Q4

REPORT INFORMATION
  Report Type: Spontaneous
  Country: US (occurrence: US)
  Receive Date: 20130221
  Receipt Date: 20131030
  Transmission Date: 20140711
  Serious: Yes (Hospitalization, Other)
  Sender: FDA-Public Use
  Company Number: US-MERCK-1302USA009111

PATIENT
  Sex: Female
  Weight: 64.4 kg

DRUGS (3)
  1. FOSAMAX [Suspect]
     Indication: OSTEOPOROSIS
     Dosage: 10 MG, QD
     Route: 048
     Dates: end: 20001220
  2. FOSAMAX [Suspect]
     Indication: OSTEOPENIA
     Dosage: 70 MG, QW
     Route: 048
     Dates: start: 20001220
  3. CALCIUM (UNSPECIFIED) (+) VITAMIN D (UNSPECIFIED) [Concomitant]
     Indication: OSTEOPOROSIS
     Dosage: 1500MG/800IU QD

REACTIONS (24)
  - Humerus fracture [Unknown]
  - Colostomy [Unknown]
  - Surgery [Unknown]
  - Post procedural infection [Unknown]
  - Hernia repair [Unknown]
  - Femur fracture [Recovering/Resolving]
  - Fall [Unknown]
  - Foot fracture [Unknown]
  - Fall [Unknown]
  - Foot fracture [Recovering/Resolving]
  - Tenosynovitis [Unknown]
  - Palpitations [Unknown]
  - Varicose vein [Unknown]
  - Synovitis [Unknown]
  - Tenosynovitis [Unknown]
  - Spinal osteoarthritis [Unknown]
  - Osteoarthritis [Unknown]
  - Osteoarthritis [Unknown]
  - Intestinal operation [Unknown]
  - Tendon sheath incision [Unknown]
  - Tendon sheath incision [Unknown]
  - Device related infection [Unknown]
  - Carpal tunnel syndrome [Recovering/Resolving]
  - Postoperative hernia [Unknown]
